FAERS Safety Report 14817354 (Version 2)
Quarter: 2018Q2

REPORT INFORMATION
  Report Type: Report from Study
  Country: US (occurrence: US)
  Receive Date: 20180426
  Receipt Date: 20180516
  Transmission Date: 20180711
  Serious: Yes (Hospitalization)
  Sender: FDA-Public Use
  Company Number: US-GILEAD-2018-0334731

PATIENT
  Age: 60 Year
  Sex: Male

DRUGS (3)
  1. AZTREONAM LYSINE [Suspect]
     Active Substance: AZTREONAM LYSINE
     Indication: PNEUMONIA PSEUDOMONAL
     Dosage: 75 MG, BID FOR 1 WEEK. ALTERNATE WITH TOBI EVERY OTHER WEEK
     Route: 055
     Dates: start: 20180220
  2. AZTREONAM LYSINE [Suspect]
     Active Substance: AZTREONAM LYSINE
     Indication: BRONCHIECTASIS
     Dosage: 75 MG, BID FOR 1 WEEK. ALTERNATE WITH TOBI EVERY OTHER WEEK
     Route: 055
  3. TOBI [Concomitant]
     Active Substance: TOBRAMYCIN
     Dosage: EVERY OTHER WEEK

REACTIONS (4)
  - Chronic obstructive pulmonary disease [Recovering/Resolving]
  - Infection [Recovering/Resolving]
  - Off label use [Not Recovered/Not Resolved]
  - Drug dose omission [Recovering/Resolving]

NARRATIVE: CASE EVENT DATE: 20180220
